FAERS Safety Report 16376000 (Version 1)
Quarter: 2019Q2

REPORT INFORMATION
  Report Type: Spontaneous
  Country: FR (occurrence: FR)
  Receive Date: 20190531
  Receipt Date: 20190531
  Transmission Date: 20190711
  Serious: Yes (Death)
  Sender: FDA-Public Use
  Company Number: FR-ACCORD-130291

PATIENT
  Age: 69 Year
  Sex: Male
  Weight: 63 kg

DRUGS (3)
  1. METFORMIN [Suspect]
     Active Substance: METFORMIN HYDROCHLORIDE
     Indication: TYPE 2 DIABETES MELLITUS
     Dosage: 3,DATE OF LAST ADMINISTRATION 25-FEB-2019,1 CP
     Route: 048
     Dates: start: 20190224
  2. GLIMEPIRIDE. [Suspect]
     Active Substance: GLIMEPIRIDE
     Indication: TYPE 2 DIABETES MELLITUS
     Dosage: 1,DATE OF LAST ADMINISTRATION 25-FEB-2019,1CP
     Route: 048
     Dates: start: 20190224, end: 20190225
  3. LANTUS [Suspect]
     Active Substance: INSULIN GLARGINE
     Indication: DIABETES MELLITUS
     Dosage: DATE OF LAST ADMINISTRATION 25-FEB-2019
     Route: 058
     Dates: start: 20190225

REACTIONS (1)
  - Death [Fatal]

NARRATIVE: CASE EVENT DATE: 20190226
